FAERS Safety Report 14884598 (Version 3)
Quarter: 2018Q2

REPORT INFORMATION
  Report Type: Spontaneous
  Country: US (occurrence: US)
  Receive Date: 20180511
  Receipt Date: 20180528
  Transmission Date: 20180711
  Serious: No
  Sender: FDA-Public Use
  Company Number: US-TEVA-2018-US-892176

PATIENT
  Sex: Male

DRUGS (1)
  1. DIAZOXIDE [Suspect]
     Active Substance: DIAZOXIDE
     Dates: end: 20180417

REACTIONS (2)
  - Blood glucose increased [Unknown]
  - Dysgeusia [Unknown]
